FAERS Safety Report 5731927-6 (Version None)
Quarter: 2008Q2

REPORT INFORMATION
  Report Type: 
  Country: None (occurrence: None)
  Receive Date: 20080508
  Receipt Date: 20080409
  Transmission Date: 20081010
  Serious: Yes (Hospitalization)
  Sender: FDA-Public Use
  Company Number: JP-MERCK-0804USA02776

PATIENT
  Age: 74 Year
  Sex: Female

DRUGS (5)
  1. DECADRON [Suspect]
     Route: 065
     Dates: start: 20070508
  2. VESANOID [Concomitant]
     Indication: ACUTE PROMYELOCYTIC LEUKAEMIA
     Route: 048
     Dates: start: 20070507, end: 20070507
  3. VESANOID [Concomitant]
     Route: 048
     Dates: start: 20070509
  4. CYLOCIDE [Concomitant]
     Route: 042
     Dates: start: 20070511
  5. FLUCONAZOLE [Concomitant]
     Route: 048

REACTIONS (8)
  - BONE MARROW FAILURE [None]
  - BRONCHOPULMONARY ASPERGILLOSIS [None]
  - DISSEMINATED INTRAVASCULAR COAGULATION [None]
  - DRUG INEFFECTIVE [None]
  - FEBRILE NEUTROPENIA [None]
  - RESPIRATORY FAILURE [None]
  - SHOCK [None]
  - WOUND INFECTION STAPHYLOCOCCAL [None]
